FAERS Safety Report 20015955 (Version 1)
Quarter: 2021Q4

REPORT INFORMATION
  Report Type: Spontaneous
  Country: US (occurrence: None)
  Receive Date: 20211102
  Receipt Date: 20211102
  Transmission Date: 20220303
  Serious: Yes (Hospitalization)
  Sender: FDA-Public Use
  Company Number: None

PATIENT
  Age: 59 Year
  Sex: Female

DRUGS (5)
  1. REPATHA [Suspect]
     Active Substance: EVOLOCUMAB
     Indication: Type IIa hyperlipidaemia
     Dosage: FREQUENCY : EVERY OTHER WEEK;?
     Route: 058
     Dates: start: 20190531
  2. METOPRAL [Concomitant]
  3. HIBRASARTEN [Concomitant]
  4. ACARBOSE [Concomitant]
     Active Substance: ACARBOSE
  5. 2 BABY ASPIRIN [Concomitant]

REACTIONS (1)
  - Cardiac operation [None]

NARRATIVE: CASE EVENT DATE: 20211022
